FAERS Safety Report 17477002 (Version 1)
Quarter: 2020Q1

REPORT INFORMATION
  Report Type: Report from Study
  Country: US (occurrence: US)
  Receive Date: 20200228
  Receipt Date: 20200228
  Transmission Date: 20200409
  Serious: Yes (Hospitalization, Other)
  Sender: FDA-Public Use
  Company Number: US-JNJFOC-20190542973

PATIENT
  Age: 20 Year
  Sex: Female
  Weight: 77.18 kg

DRUGS (8)
  1. STELARA [Suspect]
     Active Substance: USTEKINUMAB
     Indication: CROHN^S DISEASE
     Route: 065
     Dates: start: 20190325
  2. VITAMINE [Concomitant]
     Route: 048
     Dates: start: 20191009
  3. TYLENOL [Concomitant]
     Active Substance: ACETAMINOPHEN
     Indication: PAIN
     Route: 048
     Dates: start: 20190317, end: 20190529
  4. RHOGAM [Concomitant]
     Active Substance: HUMAN RHO(D) IMMUNE GLOBULIN
     Indication: DRUG INTOLERANCE
     Dosage: 1 SHOT
     Route: 065
     Dates: start: 20191107, end: 20191107
  5. VITAMINE [Concomitant]
     Indication: PAIN
     Route: 048
     Dates: start: 20190317, end: 20190529
  6. FOLIC ACID. [Concomitant]
     Active Substance: FOLIC ACID
     Indication: PRODUCT USED FOR UNKNOWN INDICATION
     Route: 048
     Dates: start: 20190522
  7. CAFFEINE. [Concomitant]
     Active Substance: CAFFEINE
     Indication: PRODUCT USED FOR UNKNOWN INDICATION
     Route: 048
     Dates: start: 20190317
  8. HUMIRA [Concomitant]
     Active Substance: ADALIMUMAB
     Indication: CROHN^S DISEASE
     Route: 058
     Dates: start: 20130701, end: 20190324

REACTIONS (5)
  - Exposure during pregnancy [Unknown]
  - Fistula [Unknown]
  - Abscess [Recovered/Resolved]
  - Off label use [Unknown]
  - Product use issue [Unknown]

NARRATIVE: CASE EVENT DATE: 20190325
